FAERS Safety Report 26111943 (Version 1)
Quarter: 2025Q4

REPORT INFORMATION
  Report Type: Spontaneous
  Country: CH (occurrence: CH)
  Receive Date: 20251202
  Receipt Date: 20251202
  Transmission Date: 20260118
  Serious: No
  Sender: PFIZER
  Company Number: CH-PFIZER INC-202500233706

PATIENT
  Age: 44 Year
  Sex: Female

DRUGS (1)
  1. MEDROXYPROGESTERONE [Suspect]
     Active Substance: MEDROXYPROGESTERONE

REACTIONS (5)
  - Incorrect dose administered by device [Unknown]
  - Underdose [Unknown]
  - Device leakage [Unknown]
  - Device mechanical issue [Unknown]
  - Device delivery system issue [Unknown]
